FAERS Safety Report 7362141-9 (Version None)
Quarter: 2011Q1

REPORT INFORMATION
  Report Type: 
  Country: None (occurrence: None)
  Receive Date: 20110309
  Receipt Date: 20110223
  Transmission Date: 20110831
  Serious: Yes (Disabling)
  Sender: FDA-Public Use
  Company Number: PHHO2005DE03419

PATIENT
  Age: 66 Year
  Sex: Male
  Weight: 224.9 kg

DRUGS (1)
  1. VISUDYNE [Suspect]
     Indication: MACULAR DEGENERATION
     Dosage: 30 ML DAILY IV
     Route: 042
     Dates: start: 20040120, end: 20040120

REACTIONS (4)
  - DISEASE PROGRESSION [None]
  - MACULAR DEGENERATION [None]
  - RETINAL PIGMENT EPITHELIAL TEAR [None]
  - RETINAL HAEMORRHAGE [None]
